FAERS Safety Report 6880915-5 (Version None)
Quarter: 2010Q3

REPORT INFORMATION
  Report Type: 
  Country: None (occurrence: None)
  Receive Date: 20100728
  Receipt Date: 20100722
  Transmission Date: 20110219
  Serious: Yes (Other)
  Sender: FDA-Public Use
  Company Number: CH-ABBOTT-10P-151-0659053-00

PATIENT
  Age: 40 Year
  Sex: Male

DRUGS (7)
  1. RITONAVIR [Interacting]
     Indication: ANTIRETROVIRAL THERAPY
     Dates: start: 19960101, end: 20010901
  2. ZIDOVUDINE [Suspect]
     Indication: ANTIRETROVIRAL THERAPY
     Dates: start: 19960101, end: 20010901
  3. LAMIVUDINE [Suspect]
     Indication: ANTIRETROVIRAL THERAPY
     Dates: start: 19960101, end: 20010901
  4. NELFINAVIR [Interacting]
     Indication: ANTIRETROVIRAL THERAPY
     Dates: start: 20010101
  5. ZIDOVUDINE [Concomitant]
     Dates: start: 20010101
  6. LAMIVUDINE [Concomitant]
     Dates: start: 20010101
  7. PYRIMETHAMINE/SULFAMETHOXAZOLE [Concomitant]
     Indication: PRODUCT USED FOR UNKNOWN INDICATION

REACTIONS (3)
  - DRUG INTERACTION [None]
  - HEPATIC ECHINOCOCCIASIS [None]
  - PAROTID GLAND ENLARGEMENT [None]
